FAERS Safety Report 21197803 (Version 1)
Quarter: 2022Q3

REPORT INFORMATION
  Report Type: Spontaneous
  Country: NL (occurrence: NL)
  Receive Date: 20220810
  Receipt Date: 20220810
  Transmission Date: 20221027
  Serious: Yes (Other)
  Sender: FDA-Public Use
  Company Number: NL-ORGANON-O2208NLD000469

PATIENT
  Sex: Female

DRUGS (5)
  1. REMERON SOLTAB [Suspect]
     Active Substance: MIRTAZAPINE
     Dosage: UNK
     Route: 048
  2. REMERON SOLTAB [Suspect]
     Active Substance: MIRTAZAPINE
     Dosage: UNK
     Route: 048
     Dates: start: 2003, end: 2004
  3. REMERON SOLTAB [Suspect]
     Active Substance: MIRTAZAPINE
     Dosage: 2 X 10 MG PER WEEK
     Route: 048
  4. REMERON SOLTAB [Suspect]
     Active Substance: MIRTAZAPINE
     Dosage: 15 MILLIGRAM
     Route: 048
  5. REMERON SOLTAB [Suspect]
     Active Substance: MIRTAZAPINE
     Dosage: 15 MILLIGRAM
     Route: 048

REACTIONS (8)
  - Atrial fibrillation [Recovered/Resolved]
  - Suicide attempt [Recovered/Resolved]
  - Cluster headache [Recovered/Resolved]
  - Adverse event [Recovered/Resolved]
  - Adverse event [Not Recovered/Not Resolved]
  - Restlessness [Recovered/Resolved]
  - Insomnia [Recovered/Resolved]
  - Product taste abnormal [Unknown]

NARRATIVE: CASE EVENT DATE: 20100101
